FAERS Safety Report 11429460 (Version 2)
Quarter: 2017Q2

REPORT INFORMATION
  Report Type: Spontaneous
  Country: US (occurrence: US)
  Receive Date: 20150828
  Receipt Date: 20170426
  Transmission Date: 20170829
  Serious: Yes (Other)
  Sender: FDA-Public Use
  Company Number: US-SUN PHARMACEUTICAL INDUSTRIES LTD-2015US-101991

PATIENT
  Sex: Male
  Weight: 81.63 kg

DRUGS (1)
  1. METOPROLOL. [Suspect]
     Active Substance: METOPROLOL
     Indication: HYPERTENSION
     Dosage: UNK
     Route: 065

REACTIONS (14)
  - Headache [Unknown]
  - Visual impairment [Unknown]
  - Chest pain [Unknown]
  - Hypertension [Unknown]
  - Balance disorder [Unknown]
  - Insomnia [Unknown]
  - Paraesthesia [Unknown]
  - Thinking abnormal [Unknown]
  - Flushing [Unknown]
  - Depression [Unknown]
  - Anxiety [Unknown]
  - Fatigue [Unknown]
  - Asthenia [Unknown]
  - Asthenia [Unknown]

NARRATIVE: CASE EVENT DATE: 2014
